FAERS Safety Report 7834564-2 (Version None)
Quarter: 2011Q4

REPORT INFORMATION
  Report Type: 
  Country: None (occurrence: None)
  Receive Date: 20111024
  Receipt Date: 20111014
  Transmission Date: 20120403
  Serious: Yes (Hospitalization)
  Sender: FDA-Public Use
  Company Number: FR-MERCK-1110USA02916

PATIENT
  Age: 60 Year
  Sex: Female

DRUGS (1)
  1. INVANZ [Suspect]
     Indication: KLEBSIELLA SEPSIS
     Route: 042
     Dates: start: 20110419, end: 20110425

REACTIONS (1)
  - DRUG INEFFECTIVE [None]
